FAERS Safety Report 5808777-5 (Version None)
Quarter: 2008Q3

REPORT INFORMATION
  Report Type: 
  Country: None (occurrence: None)
  Receive Date: 20080714
  Receipt Date: 20080701
  Transmission Date: 20090109
  Serious: Yes (Hospitalization)
  Sender: FDA-Public Use
  Company Number: FR-ELI_LILLY_AND_COMPANY-FR200805001103

PATIENT
  Age: 70 Year
  Sex: Female
  Weight: 62 kg

DRUGS (7)
  1. CYMBALTA [Suspect]
     Indication: DEPRESSION
     Dosage: 60 MG, DAILY (1/D)
     Route: 048
     Dates: start: 20080220, end: 20080313
  2. CYMBALTA [Suspect]
     Dosage: 30 MG, DAILY (1/D)
     Route: 048
     Dates: start: 20080313, end: 20080315
  3. LEVOTHYROX [Concomitant]
     Indication: HYPOTHYROIDISM
     Dosage: 75 UG, DAILY (1/D)
     Route: 048
     Dates: start: 20070101
  4. TERALITHE [Concomitant]
     Indication: DYSTHYMIC DISORDER
     Dosage: 600 MG, DAILY (1/D)
     Route: 048
  5. OROCAL [Concomitant]
     Indication: OSTEOPOROSIS
     Dosage: UNK, UNKNOWN
     Route: 048
  6. NEO-MERCAZOLE TAB [Concomitant]
     Indication: HYPOTHYROIDISM
     Dosage: 20 MG, DAILY (1/D)
     Route: 048
     Dates: start: 20070101
  7. IDEOS [Concomitant]
     Indication: OSTEOPOROSIS
     Dosage: 2 D/F, DAILY (1/D)
     Route: 048
     Dates: start: 20070101

REACTIONS (7)
  - AKATHISIA [None]
  - COGWHEEL RIGIDITY [None]
  - DISORIENTATION [None]
  - FALL [None]
  - FEMUR FRACTURE [None]
  - HALLUCINATION [None]
  - PSYCHOMOTOR HYPERACTIVITY [None]
